FAERS Safety Report 4470480-4 (Version None)
Quarter: 2004Q4

REPORT INFORMATION
  Report Type: 
  Country: None (occurrence: None)
  Receive Date: 20041005
  Receipt Date: 20040921
  Transmission Date: 20050328
  Serious: No
  Sender: FDA-Public Use
  Company Number: 2004AP04913

PATIENT
  Sex: Male

DRUGS (3)
  1. ZOLADEX [Suspect]
     Indication: PROSTATE CANCER
     Dosage: 10.8 MG Q3MO SQ
     Route: 058
     Dates: start: 20040801
  2. MAGNEISUM OXIDE [Concomitant]
  3. LEUPROLIDE ACETATE [Concomitant]

REACTIONS (2)
  - GAMMA-GLUTAMYLTRANSFERASE INCREASED [None]
  - LIVER FUNCTION TEST ABNORMAL [None]
